FAERS Safety Report 6213664-7 (Version None)
Quarter: 2009Q2

REPORT INFORMATION
  Report Type: 
  Country: None (occurrence: None)
  Receive Date: 20090601
  Receipt Date: 20090518
  Transmission Date: 20091009
  Serious: Yes (Hospitalization)
  Sender: FDA-Public Use
  Company Number: 8031408

PATIENT
  Age: 29 Year
  Sex: Female
  Weight: 64 kg

DRUGS (6)
  1. CDP870 [Suspect]
     Indication: RHEUMATOID ARTHRITIS
     Dosage: 400 MG 1/2W SC
     Route: 058
     Dates: start: 20050913, end: 20080326
  2. CDP870 [Suspect]
     Indication: RHEUMATOID ARTHRITIS
     Dosage: 400 MG 1/2W SC
     Route: 058
     Dates: start: 20080422
  3. METHOTREXATE [Concomitant]
  4. MELOXICAM [Concomitant]
  5. OMEPRAZOLE [Concomitant]
  6. METHYLPREDNISOLONE [Concomitant]

REACTIONS (16)
  - ASPARTATE AMINOTRANSFERASE DECREASED [None]
  - BACTERAEMIA [None]
  - BLOOD IMMUNOGLOBULIN A INCREASED [None]
  - BLOOD IMMUNOGLOBULIN G INCREASED [None]
  - BLOOD SODIUM DECREASED [None]
  - GASTRITIS [None]
  - GASTROENTERITIS [None]
  - HIATUS HERNIA [None]
  - LYMPHADENITIS [None]
  - NASOPHARYNGITIS [None]
  - PAIN [None]
  - RHEUMATOID ARTHRITIS [None]
  - SALPINGO-OOPHORITIS [None]
  - VIRAL INFECTION [None]
  - VULVOVAGINAL MYCOTIC INFECTION [None]
  - YERSINIA INFECTION [None]
